FAERS Safety Report 16254778 (Version 1)
Quarter: 2019Q2

REPORT INFORMATION
  Report Type: Report from Study
  Country: JP (occurrence: JP)
  Receive Date: 20190430
  Receipt Date: 20190430
  Transmission Date: 20190711
  Serious: Yes (Life-Threatening, Hospitalization)
  Sender: FDA-Public Use
  Company Number: JP-ELI_LILLY_AND_COMPANY-15896533

PATIENT
  Sex: Female
  Weight: 47 kg

DRUGS (5)
  1. POLARAMINE [Concomitant]
     Active Substance: DEXCHLORPHENIRAMINE MALEATE
     Indication: PREMEDICATION
     Dosage: 3 MG, QD
     Route: 042
     Dates: start: 20110711, end: 20110711
  2. DEXART [Concomitant]
     Active Substance: DEXAMETHASONE SODIUM PHOSPHATE
     Indication: PREMEDICATION
     Dosage: 6.6 MG, QD
     Route: 042
     Dates: start: 20110711, end: 20110711
  3. KYTRIL [Concomitant]
     Active Substance: GRANISETRON HYDROCHLORIDE
     Indication: ANTIEMETIC SUPPORTIVE CARE
     Dosage: 3 MG, QD
     Route: 042
     Dates: start: 20110711
  4. CETUXIMAB. [Suspect]
     Active Substance: CETUXIMAB
     Indication: PRODUCT USED FOR UNKNOWN INDICATION
     Dosage: 400MG/M2:IV ONCE WEEKLY
     Route: 041
     Dates: start: 20110711, end: 20110711
  5. GASTER [FAMOTIDINE] [Concomitant]
     Indication: PREMEDICATION
     Dosage: 20 MG, QD
     Route: 042
     Dates: start: 20110711, end: 20110711

REACTIONS (1)
  - Infusion related reaction [Recovered/Resolved]

NARRATIVE: CASE EVENT DATE: 20110711
